FAERS Safety Report 6542071-2 (Version None)
Quarter: 2010Q1

REPORT INFORMATION
  Report Type: 
  Country: None (occurrence: None)
  Receive Date: 20100119
  Receipt Date: 20100113
  Transmission Date: 20100710
  Serious: Yes (Hospitalization)
  Sender: FDA-Public Use
  Company Number: ES-BAYER-201011140GPV

PATIENT
  Age: 92 Year
  Sex: Male

DRUGS (4)
  1. ADIRO [Suspect]
     Indication: DRUG USE FOR UNKNOWN INDICATION
     Dosage: TOTAL DAILY DOSE: 100 MG
     Route: 048
     Dates: start: 20090308, end: 20090419
  2. ENANTYUM [Interacting]
     Indication: MUSCLE CONTRACTURE
     Dosage: UNIT DOSE: 25 MG
     Route: 048
     Dates: start: 20090412, end: 20090419
  3. HEMOVAS [Concomitant]
     Dosage: UNIT DOSE: 400 MG
     Route: 048
     Dates: start: 20090308
  4. OMEPRAZOL [Concomitant]
     Indication: PROPHYLAXIS
     Route: 048
     Dates: start: 20090308

REACTIONS (3)
  - ACUTE CORONARY SYNDROME [None]
  - DYSPNOEA [None]
  - GASTROINTESTINAL HAEMORRHAGE [None]
